FAERS Safety Report 5205404-5 (Version None)
Quarter: 2006Q4

REPORT INFORMATION
  Report Type: 
  Country: None (occurrence: None)
  Receive Date: 20061027
  Receipt Date: 20060913
  Transmission Date: 20070319
  Serious: No
  Sender: FDA-Public Use
  Company Number: 200615594US

PATIENT
  Age: 37 Year
  Sex: Female
  Weight: 59.09 kg

DRUGS (3)
  1. KETEK [Suspect]
     Indication: UPPER RESPIRATORY TRACT INFECTION
     Dosage: QD
     Dates: start: 20060605, end: 20060610
  2. GLUCOSAMINE SULFATE, ASCORBIC ACID, MANGANESE, CHONDROITIN SULFATE (GL [Concomitant]
  3. TUSSIONEX [Concomitant]

REACTIONS (2)
  - ABDOMINAL PAIN [None]
  - VISION BLURRED [None]
